FAERS Safety Report 19117984 (Version 1)
Quarter: 2021Q2

REPORT INFORMATION
  Report Type: Report from Study
  Country: JP (occurrence: JP)
  Receive Date: 20210409
  Receipt Date: 20210409
  Transmission Date: 20210717
  Serious: Yes (Hospitalization, Other)
  Sender: FDA-Public Use
  Company Number: JP-B.I. PHARMACEUTICALS,INC./RIDGEFIELD-2021-BI-095291

PATIENT
  Age: 81 Year
  Sex: Male
  Weight: 64.5 kg

DRUGS (4)
  1. LUNESTA [Concomitant]
     Active Substance: ESZOPICLONE
     Indication: INSOMNIA
     Route: 048
     Dates: start: 20180508
  2. AFATINIB [Suspect]
     Active Substance: AFATINIB
     Indication: NON-SMALL CELL LUNG CANCER
     Route: 065
     Dates: start: 20180601, end: 20191226
  3. AFATINIB [Suspect]
     Active Substance: AFATINIB
     Route: 065
     Dates: start: 20191227, end: 20200408
  4. AFATINIB [Suspect]
     Active Substance: AFATINIB
     Route: 065
     Dates: start: 20200409

REACTIONS (2)
  - Dementia [Unknown]
  - Rash pustular [Unknown]

NARRATIVE: CASE EVENT DATE: 20210309
